FAERS Safety Report 20847199 (Version 5)
Quarter: 2024Q4

REPORT INFORMATION
  Report Type: Spontaneous
  Country: PK (occurrence: PK)
  Receive Date: 20220519
  Receipt Date: 20241216
  Transmission Date: 20250115
  Serious: Yes (Disabling)
  Sender: AMGEN
  Company Number: PK-PFIZER INC-202101023993

PATIENT
  Age: 27 Year
  Sex: Female

DRUGS (11)
  1. ENBREL [Suspect]
     Active Substance: ETANERCEPT
     Indication: Peripheral spondyloarthritis
     Dosage: 50 MG, EVERY TWO WEEKS
     Route: 058
  2. ENBREL [Suspect]
     Active Substance: ETANERCEPT
     Indication: Arthritis
     Dosage: 50 MG, WEEKLY
     Route: 058
     Dates: start: 20210809
  3. DELTACORTRIL [Concomitant]
     Active Substance: PREDNISOLONE
     Dosage: 2+2+0+0, AFTER MEAL, 2+2 IN MORNING AND AFTERNOON AFTER MEAL FOR 1 WEEK
  4. DELTACORTRIL [Concomitant]
     Active Substance: PREDNISOLONE
     Dosage: 2+1+0+0, AFTER MEAL, 2+1 IN MORNING AND AFTERNOON AFTER MEAL FOR 1 WEEK
  5. DELTACORTRIL [Concomitant]
     Active Substance: PREDNISOLONE
     Dosage: 1 DF, 2+0+0+0, AFTER MEAL, 2 TAB IN MORNING AFTER MEAL FOR 1 WEEK
  6. DELTACORTRIL [Concomitant]
     Active Substance: PREDNISOLONE
     Dosage: 1 DF, 1+0+0+0, AFTER MEAL, IN MORNING AFTER MEAL FOR 1 WEEK
  7. FOLIC ACID [Concomitant]
     Active Substance: FOLIC ACID
     Dosage: 5 MG, 1X/DAY
  8. Risek [Concomitant]
     Dosage: 20 MG, BEFORE MEAL, 1+1 CAP IN MORNING AND EVENING BEFORE MEAL FOR 2 WEEKS
  9. Sunny d [Concomitant]
     Dosage: 1 DF, MONTHLY
  10. XOBIX [Concomitant]
     Dosage: 1 DF, AS NEEDED
  11. XOBIX [Concomitant]
     Dosage: 15 MG, DAILY(1+0+0+0, AFTER MEAL, 1 TAB IN MORNING AFTER MEAL FOR 2 WEEKS)

REACTIONS (6)
  - Joint swelling [Unknown]
  - Arthralgia [Unknown]
  - Arthritis [Unknown]
  - Infection [Unknown]
  - Greater trochanteric pain syndrome [Unknown]
  - Off label use [Unknown]
